FAERS Safety Report 21575244 (Version 1)
Quarter: 2022Q4

REPORT INFORMATION
  Report Type: Report from Study
  Country: BG (occurrence: BG)
  Receive Date: 20221110
  Receipt Date: 20221110
  Transmission Date: 20230113
  Serious: Yes (Other)
  Sender: FDA-Public Use
  Company Number: BG-ABBVIE-22K-022-4398316-00

PATIENT
  Age: 31 Year
  Sex: Female

DRUGS (1)
  1. HUMIRA [Suspect]
     Active Substance: ADALIMUMAB
     Indication: Colitis ulcerative
     Route: 058

REACTIONS (3)
  - Caesarean section [Unknown]
  - Maternal exposure during pregnancy [Unknown]
  - Live birth [Unknown]
